FAERS Safety Report 4697781-9 (Version None)
Quarter: 2005Q2

REPORT INFORMATION
  Report Type: 
  Country: None (occurrence: None)
  Receive Date: 20050621
  Receipt Date: 20050621
  Transmission Date: 20051028
  Serious: Yes (Hospitalization)
  Sender: FDA-Public Use
  Company Number: None

PATIENT
  Age: 57 Year
  Sex: Male
  Weight: 83.6 kg

DRUGS (2)
  1. MORPHINE SULFATE [Suspect]
     Indication: PAIN
     Dosage: 1 TAB BID
     Dates: start: 20041230, end: 20050101
  2. AUGMENTIN '500' [Suspect]
     Indication: SKIN INFECTION
     Dosage: 1 TAB BID FOR 10 DAYS
     Dates: start: 20041230, end: 20050101

REACTIONS (4)
  - BACK PAIN [None]
  - NAUSEA [None]
  - SKIN INFECTION [None]
  - VOMITING [None]
